FAERS Safety Report 17928464 (Version 3)
Quarter: 2022Q3

REPORT INFORMATION
  Report Type: Spontaneous
  Country: DE (occurrence: DE)
  Receive Date: 20200623
  Receipt Date: 20220826
  Transmission Date: 20221026
  Serious: Yes (Hospitalization)
  Sender: FDA-Public Use
  Company Number: DE-ACCORD-186259

PATIENT
  Age: 61 Year
  Sex: Female
  Weight: 90 kg

DRUGS (11)
  1. AMLODIPINE [Interacting]
     Active Substance: AMLODIPINE BESYLATE
     Indication: Hypertension
  2. DOXAZOSIN [Interacting]
     Active Substance: DOXAZOSIN MESYLATE
     Indication: Hypertension
  3. BISOPROLOL [Interacting]
     Active Substance: BISOPROLOL
     Indication: Hypertension
  4. VALSARTAN [Interacting]
     Active Substance: VALSARTAN
     Indication: Hypertension
  5. RIFAMPIN [Interacting]
     Active Substance: RIFAMPIN
     Indication: Anti-infective therapy
  6. CLONIDINE [Suspect]
     Active Substance: CLONIDINE
     Indication: Hypertension
  7. CHLORTHALIDONE [Suspect]
     Active Substance: CHLORTHALIDONE
     Indication: Hypertension
  8. URAPIDIL [Suspect]
     Active Substance: URAPIDIL
     Indication: Hypertension
     Dosage: 530 MG, 610 MG, 860 MG, 940 MG, 790MG, 670 MG. 620 MG, 200 MG, 190 MG
  9. VANCOMYCIN [Concomitant]
     Active Substance: VANCOMYCIN
     Indication: Device related infection
  10. MEROPENEM [Concomitant]
     Active Substance: MEROPENEM
     Indication: Device related infection
  11. CLONIDINE [Suspect]
     Active Substance: CLONIDINE
     Indication: Hypertension
     Dosage: 475 UG, QD

REACTIONS (4)
  - Blood pressure increased [Recovered/Resolved]
  - Drug interaction [Unknown]
  - Drug ineffective [Unknown]
  - Condition aggravated [Recovered/Resolved]
